FAERS Safety Report 14728413 (Version 3)
Quarter: 2019Q1

REPORT INFORMATION
  Report Type: Spontaneous
  Country: US (occurrence: US)
  Receive Date: 20180406
  Receipt Date: 20190117
  Transmission Date: 20190417
  Serious: Yes (Other)
  Sender: FDA-Public Use
  Company Number: US-JNJFOC-20180402075

PATIENT
  Age: 56 Year
  Sex: Male

DRUGS (25)
  1. FLEXERIL [Concomitant]
     Active Substance: CYCLOBENZAPRINE HYDROCHLORIDE
     Indication: MUSCLE RELAXANT THERAPY
     Route: 065
  2. XARELTO [Suspect]
     Active Substance: RIVAROXABAN
     Indication: THROMBOSIS
     Route: 048
     Dates: start: 20150115
  3. ASPIRIN. [Concomitant]
     Active Substance: ASPIRIN
     Route: 065
  4. ONDANSETRON [Concomitant]
     Active Substance: ONDANSETRON
     Indication: MOTION SICKNESS
     Route: 065
  5. TRAMADOL. [Concomitant]
     Active Substance: TRAMADOL
     Indication: PAIN
     Route: 065
  6. ONDANSETRON [Concomitant]
     Active Substance: ONDANSETRON
     Indication: MIGRAINE
     Route: 065
  7. OXYCODONE [Concomitant]
     Active Substance: OXYCODONE
     Indication: PAIN
     Route: 065
  8. VICODIN [Concomitant]
     Active Substance: ACETAMINOPHEN\HYDROCODONE BITARTRATE
     Indication: PAIN
     Dosage: DOSAGE: 7.5/300 MG.??2 TIMES A DAY BUT SOMETIMES WILL TAKE UP TO 10 TIMES A DAY IF NEEDED.
     Route: 065
  9. CETIRIZINE HYDROCHLORIDE. [Concomitant]
     Active Substance: CETIRIZINE HYDROCHLORIDE
     Indication: MULTIPLE ALLERGIES
     Route: 065
  10. NAPROXEN. [Concomitant]
     Active Substance: NAPROXEN
     Indication: MIGRAINE
     Route: 065
  11. CURCUMIN [Concomitant]
     Active Substance: CURCUMIN
     Indication: ARTHRITIS
     Route: 065
  12. PROCHLORPERAZINE. [Concomitant]
     Active Substance: PROCHLORPERAZINE
     Indication: MIGRAINE
     Route: 065
  13. VITAMIN C [Concomitant]
     Active Substance: ASCORBIC ACID
     Indication: CORTISOL DECREASED
     Route: 065
  14. RIBOFLAVIN [Concomitant]
     Active Substance: RIBOFLAVIN
     Indication: MIGRAINE PROPHYLAXIS
     Route: 065
  15. COQ 10 [Concomitant]
     Active Substance: UBIDECARENONE
     Indication: HYPERLIPIDAEMIA
     Route: 065
  16. METFORMIN [Concomitant]
     Active Substance: METFORMIN HYDROCHLORIDE
     Route: 065
  17. FUROSEMIDE. [Concomitant]
     Active Substance: FUROSEMIDE
     Indication: FLUID RETENTION
     Route: 065
  18. GLUCOSAMINE [Concomitant]
     Active Substance: GLUCOSAMINE
     Indication: ARTHRITIS
     Route: 065
  19. ALPHA LIPOIC ACID [Concomitant]
     Active Substance: .ALPHA.-LIPOIC ACID
     Indication: TYPE 2 DIABETES MELLITUS
     Route: 065
  20. PRESERVISION [Concomitant]
     Active Substance: MINERALS\VITAMINS
     Indication: GENERAL PHYSICAL CONDITION
     Route: 065
  21. VITAMIN D3 [Concomitant]
     Active Substance: CHOLECALCIFEROL
     Indication: ROUTINE HEALTH MAINTENANCE
     Route: 065
  22. FOLIC ACID. [Concomitant]
     Active Substance: FOLIC ACID
     Indication: GENE MUTATION
     Route: 065
  23. N ACETYL CYSTEINE [Concomitant]
     Active Substance: ACETYLCYSTEINE
     Indication: HEPATIC ENZYME INCREASED
     Route: 065
  24. VITAMIN B2 [Concomitant]
     Active Substance: RIBOFLAVIN
     Indication: MIGRAINE PROPHYLAXIS
     Route: 065
  25. ATORVASTATIN [Concomitant]
     Active Substance: ATORVASTATIN
     Indication: BLOOD CHOLESTEROL
     Dosage: DOSAGE: 20 MG HALF TABLET A DAY
     Route: 065

REACTIONS (2)
  - Hypercoagulation [Unknown]
  - Product dose omission [Unknown]

NARRATIVE: CASE EVENT DATE: 201803
